FAERS Safety Report 8556145-8 (Version None)
Quarter: 2012Q3

REPORT INFORMATION
  Report Type: 
  Country: None (occurrence: None)
  Receive Date: 20120719
  Receipt Date: 20120514
  Transmission Date: 20120928
  Serious: Yes (Hospitalization)
  Sender: FDA-Public Use
  Company Number: AE-SPE-2012-004

PATIENT
  Age: 50 Year
  Sex: Male

DRUGS (2)
  1. MEIACT MS [Suspect]
     Indication: GINGIVITIS
     Dosage: P.O.
     Route: 048
     Dates: start: 20110701, end: 20110701
  2. LOXOPROFEN SODIUM HYDRATE [Concomitant]

REACTIONS (2)
  - ANAPHYLACTIC SHOCK [None]
  - FEELING ABNORMAL [None]
